FAERS Safety Report 19925688 (Version 1)
Quarter: 2021Q4

REPORT INFORMATION
  Report Type: Spontaneous
  Country: US (occurrence: US)
  Receive Date: 20211006
  Receipt Date: 20211006
  Transmission Date: 20220303
  Serious: No
  Sender: FDA-Public Use
  Company Number: US-INCYTE CORPORATION-2021IN008926

PATIENT

DRUGS (1)
  1. JAKAFI [Suspect]
     Active Substance: RUXOLITINIB
     Indication: Blood disorder
     Dosage: 5 MILLIGRAM, BID
     Route: 048
     Dates: start: 20190219

REACTIONS (4)
  - Joint swelling [Unknown]
  - Emotional disorder [Unknown]
  - Off label use [Unknown]
  - Contusion [Unknown]

NARRATIVE: CASE EVENT DATE: 20190219
